FAERS Safety Report 5564339-9 (Version None)
Quarter: 2007Q4

REPORT INFORMATION
  Report Type: 
  Country: None (occurrence: None)
  Receive Date: 20071218
  Receipt Date: 20071207
  Transmission Date: 20080405
  Serious: Yes (Hospitalization)
  Sender: FDA-Public Use
  Company Number: PHHO2007US20209

PATIENT
  Age: 70 Year
  Sex: Female
  Weight: 88.6 kg

DRUGS (3)
  1. *CGP 57148B* [Suspect]
     Indication: SARCOMA
     Dosage: 400 MG, UNK
     Route: 048
     Dates: start: 20071119, end: 20071128
  2. TAXOTERE [Suspect]
     Indication: SARCOMA
     Dosage: 59 MG, UNK
     Route: 042
  3. GEMZAR [Suspect]
     Indication: SARCOMA
     Dosage: 1170MG
     Route: 042

REACTIONS (1)
  - ANGINA PECTORIS [None]
